FAERS Safety Report 5322408-2 (Version None)
Quarter: 2007Q2

REPORT INFORMATION
  Report Type: 
  Country: None (occurrence: None)
  Receive Date: 20070511
  Receipt Date: 20070501
  Transmission Date: 20071010
  Serious: Yes (Hospitalization)
  Sender: FDA-Public Use
  Company Number: GB-AVENTIS-200712141EU

PATIENT
  Sex: Male

DRUGS (5)
  1. CLEXANE [Suspect]
     Dates: start: 20070425, end: 20070426
  2. CLEXANE [Suspect]
     Dates: start: 20070427, end: 20070430
  3. CLEXANE [Suspect]
  4. WARFARIN [Concomitant]
     Dates: end: 20070501
  5. CLARITHROMYCIN [Concomitant]
     Dates: start: 20070430, end: 20070501

REACTIONS (2)
  - CARDIAC DISORDER [None]
  - INTERNATIONAL NORMALISED RATIO INCREASED [None]
